FAERS Safety Report 7073064-7 (Version None)
Quarter: 2010Q4

REPORT INFORMATION
  Report Type: 
  Country: None (occurrence: None)
  Receive Date: 20101029
  Receipt Date: 20100419
  Transmission Date: 20110411
  Serious: No
  Sender: FDA-Public Use
  Company Number: A0855698A

PATIENT
  Age: 72 Year
  Sex: Male

DRUGS (9)
  1. ADVAIR DISKUS 100/50 [Suspect]
     Indication: CHRONIC OBSTRUCTIVE PULMONARY DISEASE
     Dosage: 1PCT TWICE PER DAY
     Route: 055
  2. SPIRIVA [Concomitant]
  3. COMBIVENT [Concomitant]
  4. LASIX [Concomitant]
  5. K-TAB [Concomitant]
  6. CARDIZEM [Concomitant]
  7. PREDNISONE [Concomitant]
  8. GLUCOPHAGE [Concomitant]
  9. MYCOSTATIN [Concomitant]

REACTIONS (1)
  - TONGUE ULCERATION [None]
